FAERS Safety Report 4354732-4 (Version None)
Quarter: 2004Q2

REPORT INFORMATION
  Report Type: 
  Country: None (occurrence: None)
  Receive Date: 20040503
  Receipt Date: 20040422
  Transmission Date: 20050107
  Serious: Yes (Hospitalization)
  Sender: FDA-Public Use
  Company Number: US-JNJFOC-20040405384

PATIENT
  Sex: Female

DRUGS (2)
  1. DURAGESIC [Suspect]
     Indication: PAIN MANAGEMENT
     Dosage: 75 UG, TRANSDERMAL
     Route: 062
     Dates: start: 20040403, end: 20040408
  2. PERCOCET [Concomitant]

REACTIONS (5)
  - ASTHENIA [None]
  - FATIGUE [None]
  - MOBILITY DECREASED [None]
  - PERICARDIAL EFFUSION [None]
  - SOMNOLENCE [None]
